FAERS Safety Report 22083356 (Version 1)
Quarter: 2023Q1

REPORT INFORMATION
  Report Type: Spontaneous
  Country: JP (occurrence: JP)
  Receive Date: 20230310
  Receipt Date: 20230310
  Transmission Date: 20230418
  Serious: Yes (Other)
  Sender: FDA-Public Use
  Company Number: JP-drreddys-LIT/JAP/23/0162139

PATIENT
  Age: 71 Year
  Sex: Female

DRUGS (6)
  1. AZACITIDINE [Suspect]
     Active Substance: AZACITIDINE
     Indication: Acute myeloid leukaemia
  2. VENETOCLAX [Suspect]
     Active Substance: VENETOCLAX
     Indication: Acute myeloid leukaemia
  3. VENETOCLAX [Suspect]
     Active Substance: VENETOCLAX
  4. VENETOCLAX [Suspect]
     Active Substance: VENETOCLAX
  5. VENETOCLAX [Suspect]
     Active Substance: VENETOCLAX
  6. VENETOCLAX [Suspect]
     Active Substance: VENETOCLAX

REACTIONS (3)
  - Acute myeloid leukaemia refractory [Recovering/Resolving]
  - Drug ineffective [Unknown]
  - FLT3 gene mutation [Unknown]
